FAERS Safety Report 6267237-0 (Version None)
Quarter: 2009Q3

REPORT INFORMATION
  Report Type: 
  Country: None (occurrence: None)
  Receive Date: 20090714
  Receipt Date: 20090702
  Transmission Date: 20100115
  Serious: Yes (Life-Threatening)
  Sender: FDA-Public Use
  Company Number: JP-PFIZER INC-2009181031

PATIENT
  Age: 66 Year

DRUGS (13)
  1. VFEND [Suspect]
     Indication: ASPERGILLOSIS
     Dosage: 150 MG, 2X/DAY
     Dates: start: 20090225, end: 20090308
  2. DECADRON [Suspect]
     Dosage: 20 MG, 2X/DAY
     Route: 048
     Dates: start: 20090214, end: 20090302
  3. CALCIUM LACTATE [Concomitant]
  4. AMARYL [Concomitant]
  5. GLUCOBAY [Concomitant]
  6. BLOPRESS [Concomitant]
  7. HARNAL [Concomitant]
  8. TRANSAMIN [Concomitant]
  9. RIZE [Concomitant]
  10. CASODEX [Concomitant]
  11. PARIET [Concomitant]
  12. ALENDRONATE SODIUM [Concomitant]
  13. BAKTAR [Concomitant]

REACTIONS (2)
  - ALTERED STATE OF CONSCIOUSNESS [None]
  - LIVER DISORDER [None]
